FAERS Safety Report 16956738 (Version 1)
Quarter: 2019Q4

REPORT INFORMATION
  Report Type: Spontaneous
  Country: IT (occurrence: IT)
  Receive Date: 20191024
  Receipt Date: 20191024
  Transmission Date: 20200122
  Serious: Yes (Hospitalization)
  Sender: FDA-Public Use
  Company Number: IT-MYLANLABS-2019M1100130

PATIENT
  Age: 54 Year
  Sex: Female

DRUGS (26)
  1. PHENOBARBITAL. [Suspect]
     Active Substance: PHENOBARBITAL
     Indication: POST-TRAUMATIC EPILEPSY
     Dosage: 50 MILLIGRAM
     Route: 065
     Dates: start: 2017, end: 201901
  2. QUETIAPINE. [Concomitant]
     Active Substance: QUETIAPINE
     Dosage: 300 MILLIGRAM
     Route: 065
  3. ZONISAMIDE. [Suspect]
     Active Substance: ZONISAMIDE
     Indication: PSYCHOGENIC SEIZURE
  4. QUETIAPINE. [Concomitant]
     Active Substance: QUETIAPINE
     Dosage: 500 MILLIGRAM, QD
     Route: 065
  5. CARBOLITHIUM [Concomitant]
     Active Substance: LITHIUM CARBONATE
     Indication: PSYCHOTHERAPY
     Dosage: 900 MILLIGRAM, QD
     Route: 065
  6. ZONISAMIDE. [Suspect]
     Active Substance: ZONISAMIDE
     Indication: SEIZURE
  7. CLOBAZAM. [Suspect]
     Active Substance: CLOBAZAM
     Indication: POST-TRAUMATIC EPILEPSY
     Dosage: 10 MILLIGRAM
     Route: 065
     Dates: start: 2017
  8. LORAZEPAM. [Suspect]
     Active Substance: LORAZEPAM
     Indication: POST-TRAUMATIC EPILEPSY
  9. PHENOBARBITAL. [Suspect]
     Active Substance: PHENOBARBITAL
     Indication: SEIZURE
  10. CITALOPRAM [Concomitant]
     Active Substance: CITALOPRAM HYDROBROMIDE
     Indication: PSYCHOTHERAPY
     Dosage: 20 MILLIGRAM
     Route: 065
     Dates: start: 2017
  11. QUETIAPINE. [Concomitant]
     Active Substance: QUETIAPINE
     Indication: PSYCHOTHERAPY
     Dosage: 50 MILLIGRAM
     Route: 065
     Dates: start: 2017
  12. QUETIAPINE. [Concomitant]
     Active Substance: QUETIAPINE
     Dosage: 400 MILLIGRAM, QD
     Route: 065
  13. LEVOTHYROXINE. [Concomitant]
     Active Substance: LEVOTHYROXINE
     Indication: PRODUCT USED FOR UNKNOWN INDICATION
     Dosage: 50 MICROGRAM
     Route: 065
     Dates: start: 2017, end: 201907
  14. LACOSAMIDE. [Suspect]
     Active Substance: LACOSAMIDE
     Indication: PSYCHOGENIC SEIZURE
  15. PHENOBARBITAL. [Suspect]
     Active Substance: PHENOBARBITAL
     Indication: PSYCHOGENIC SEIZURE
  16. CLOBAZAM. [Suspect]
     Active Substance: CLOBAZAM
     Indication: PSYCHOGENIC SEIZURE
  17. VALPROIC ACID. [Concomitant]
     Active Substance: VALPROIC ACID
     Indication: PSYCHOGENIC SEIZURE
  18. LORAZEPAM. [Suspect]
     Active Substance: LORAZEPAM
     Indication: SEIZURE
     Dosage: 2 MILLIGRAM
     Route: 065
  19. LORAZEPAM. [Suspect]
     Active Substance: LORAZEPAM
     Indication: PSYCHOGENIC SEIZURE
     Dosage: 1.5 MILLIGRAM
     Route: 065
     Dates: end: 201907
  20. LACOSAMIDE. [Suspect]
     Active Substance: LACOSAMIDE
     Indication: POST-TRAUMATIC EPILEPSY
     Dosage: 400 MILLIGRAM
     Route: 065
     Dates: start: 2017, end: 201907
  21. LACOSAMIDE. [Suspect]
     Active Substance: LACOSAMIDE
     Indication: SEIZURE
  22. VALPROIC ACID. [Concomitant]
     Active Substance: VALPROIC ACID
     Indication: POST-TRAUMATIC EPILEPSY
     Route: 065
     Dates: start: 2017
  23. VALPROIC ACID. [Concomitant]
     Active Substance: VALPROIC ACID
     Indication: SEIZURE
  24. ZONISAMIDE. [Suspect]
     Active Substance: ZONISAMIDE
     Indication: POST-TRAUMATIC EPILEPSY
     Dosage: 300 MILLIGRAM
     Route: 065
     Dates: start: 2017, end: 201901
  25. CLOBAZAM. [Suspect]
     Active Substance: CLOBAZAM
     Indication: SEIZURE
  26. CARBOLITHIUM [Concomitant]
     Active Substance: LITHIUM CARBONATE
     Dosage: 1200 MILLIGRAM, QD
     Route: 065

REACTIONS (1)
  - Drug ineffective [Unknown]
